FAERS Safety Report 23280926 (Version 3)
Quarter: 2024Q2

REPORT INFORMATION
  Report Type: Report from Study
  Country: US (occurrence: US)
  Receive Date: 20231211
  Receipt Date: 20240512
  Transmission Date: 20240715
  Serious: No
  Sender: FDA-Public Use
  Company Number: US-ALXN-A202310367

PATIENT
  Sex: Female

DRUGS (1)
  1. STRENSIQ [Suspect]
     Active Substance: ASFOTASE ALFA
     Indication: Hypophosphatasia
     Dosage: 1 DF (1 INJECTION), TIW
     Route: 065

REACTIONS (10)
  - Off label use [Unknown]
  - Tremor [Unknown]
  - Pruritus [Recovering/Resolving]
  - Hyperhidrosis [Unknown]
  - Temperature intolerance [Unknown]
  - Joint contracture [Recovered/Resolved]
  - Tonsillolith [Recovered/Resolved]
  - Menopause [Unknown]
  - Arthropathy [Recovering/Resolving]
  - Road traffic accident [Unknown]
